FAERS Safety Report 6003684-X (Version None)
Quarter: 2008Q4

REPORT INFORMATION
  Report Type: 
  Country: None (occurrence: None)
  Receive Date: 20081212
  Receipt Date: 20081212
  Transmission Date: 20090506
  Serious: Yes (Hospitalization, Other)
  Sender: FDA-Public Use
  Company Number: None

PATIENT
  Sex: Female
  Weight: 58.9676 kg

DRUGS (9)
  1. NEURONTIN [Suspect]
     Indication: COMPLEX REGIONAL PAIN SYNDROME
     Dosage: 200 MG AT BEDTIME PO
     Route: 048
     Dates: start: 20081107, end: 20081124
  2. NEURONTIN [Suspect]
     Indication: CONVULSION
     Dosage: 200 MG AT BEDTIME PO
     Route: 048
     Dates: start: 20081107, end: 20081124
  3. SINGULAIR [Concomitant]
  4. WHOLEZYME AND ALOE VERA [Concomitant]
  5. GATORADE [Concomitant]
  6. IMPLANON PROGESTERON IMPLANT [Concomitant]
  7. NOR-BE 28S [Concomitant]
  8. VICODIN [Concomitant]
  9. IBUPROFEN [Concomitant]

REACTIONS (7)
  - CONVULSION [None]
  - DIZZINESS [None]
  - FATIGUE [None]
  - MIGRAINE [None]
  - PAIN [None]
  - PRODUCT QUALITY ISSUE [None]
  - THERAPEUTIC RESPONSE UNEXPECTED WITH DRUG SUBSTITUTION [None]
